FAERS Safety Report 25087345 (Version 3)
Quarter: 2025Q1

REPORT INFORMATION
  Report Type: Spontaneous
  Country: CA (occurrence: CA)
  Receive Date: 20250318
  Receipt Date: 20250321
  Transmission Date: 20250409
  Serious: Yes (Hospitalization)
  Sender: CELLTRION
  Company Number: CA-CELLTRION INC.-2024CA017212

PATIENT

DRUGS (10)
  1. INFLIXIMAB [Interacting]
     Active Substance: INFLIXIMAB
     Indication: Colitis ulcerative
     Dosage: 120 MILLIGRAM PER MILLILITRE, Q2WEEKS
     Route: 058
     Dates: start: 20240610
  2. INFLIXIMAB [Interacting]
     Active Substance: INFLIXIMAB
     Dosage: 120 MILLIGRAM PER MILLILITRE, Q2WEEKS
     Route: 058
     Dates: start: 20240710
  3. INFLIXIMAB [Interacting]
     Active Substance: INFLIXIMAB
     Dosage: 120 MILLIGRAM PER MILLILITRE, WEEKLY
     Route: 058
     Dates: start: 20240729
  4. INFLIXIMAB [Interacting]
     Active Substance: INFLIXIMAB
     Dosage: 120 MILLIGRAM PER MILLILITRE, EVERY 7 DAYS
     Route: 058
     Dates: start: 20240610
  5. INFLIXIMAB [Interacting]
     Active Substance: INFLIXIMAB
     Dosage: MAINTENANCE - 120 MG - SC (SUBCUTANEOUS) EVERY 7 DAYS (STOP DATE: 2025)
     Route: 058
     Dates: start: 20240610
  6. CALCIUM [Concomitant]
     Active Substance: CALCIUM
     Indication: Product used for unknown indication
     Route: 065
  7. VITAMIN D NOS [Concomitant]
     Active Substance: CHOLECALCIFEROL\ERGOCALCIFEROL
     Indication: Product used for unknown indication
     Route: 065
  8. MESALAMINE [Concomitant]
     Active Substance: MESALAMINE
     Indication: Product used for unknown indication
     Route: 065
  9. MESALAMINE [Concomitant]
     Active Substance: MESALAMINE
     Route: 065
  10. PREDNISONE [Concomitant]
     Active Substance: PREDNISONE
     Indication: Product used for unknown indication
     Route: 065

REACTIONS (7)
  - Hospitalisation [Unknown]
  - Condition aggravated [Unknown]
  - Product distribution issue [Unknown]
  - Product dose omission issue [Unknown]
  - Incorrect dose administered by device [Unknown]
  - Intentional product use issue [Unknown]
  - Intentional dose omission [Unknown]

NARRATIVE: CASE EVENT DATE: 20240729
